FAERS Safety Report 8348121-5 (Version None)
Quarter: 2012Q2

REPORT INFORMATION
  Report Type: 
  Country: None (occurrence: None)
  Receive Date: 20120507
  Receipt Date: 20120424
  Transmission Date: 20120825
  Serious: Yes (Hospitalization)
  Sender: FDA-Public Use
  Company Number: VAL_00752_2012

PATIENT

DRUGS (2)
  1. CARBAMAZEPINE [Suspect]
     Indication: CONVULSION
     Dosage: (400 MG QD).
  2. ALBENDAZOLE [Concomitant]

REACTIONS (5)
  - RASH GENERALISED [None]
  - TRANSAMINASES INCREASED [None]
  - RASH ERYTHEMATOUS [None]
  - HEPATOSPLENOMEGALY [None]
  - PRURITUS [None]
